FAERS Safety Report 10473756 (Version 1)
Quarter: 2014Q3

REPORT INFORMATION
  Report Type: Spontaneous
  Country: ES (occurrence: ES)
  Receive Date: 20140924
  Receipt Date: 20140924
  Transmission Date: 20150326
  Serious: Yes (Other)
  Sender: FDA-Public Use
  Company Number: ES-ABBVIE-14K-144-1285785-00

PATIENT
  Age: 39 Year
  Sex: Male

DRUGS (1)
  1. HUMIRA [Suspect]
     Active Substance: ADALIMUMAB
     Indication: PSORIASIS
     Route: 058
     Dates: start: 201312, end: 201408

REACTIONS (5)
  - Cough [Recovered/Resolved]
  - Malaise [Recovered/Resolved]
  - Pulmonary cavitation [Recovering/Resolving]
  - Lung infiltration [Recovering/Resolving]
  - Tuberculosis [Recovering/Resolving]

NARRATIVE: CASE EVENT DATE: 201408
